FAERS Safety Report 7534249-6 (Version None)
Quarter: 2011Q2

REPORT INFORMATION
  Report Type: 
  Country: None (occurrence: None)
  Receive Date: 20110608
  Receipt Date: 20070123
  Transmission Date: 20111010
  Serious: Yes (Other)
  Sender: FDA-Public Use
  Company Number: PHHO2007KR01783

PATIENT

DRUGS (1)
  1. CLOZARIL [Suspect]
     Dosage: UNK
     Route: 048

REACTIONS (2)
  - HYDRONEPHROSIS [None]
  - HYPERTENSION [None]
